FAERS Safety Report 6246161-3 (Version None)
Quarter: 2009Q2

REPORT INFORMATION
  Report Type: 
  Country: None (occurrence: None)
  Receive Date: 20090626
  Receipt Date: 20090522
  Transmission Date: 20091009
  Serious: No
  Sender: FDA-Public Use
  Company Number: A0785873A

PATIENT
  Age: 55 Year
  Sex: Female

DRUGS (6)
  1. IMITREX [Suspect]
     Indication: MIGRAINE
     Dosage: 100MG AS REQUIRED
     Route: 048
     Dates: start: 19940101
  2. SUMATRIPTAN SUCCINATE [Suspect]
     Indication: MIGRAINE
     Dosage: 100MG AS REQUIRED
     Route: 048
     Dates: start: 20090301, end: 20090301
  3. MULTI-VITAMIN [Concomitant]
  4. VITAMIN C SUPPLEMENT [Concomitant]
  5. HORMONE PATCH [Concomitant]
  6. CALCIUM SUPPLEMENT [Concomitant]

REACTIONS (3)
  - DRUG INEFFECTIVE [None]
  - FEAR [None]
  - OVERDOSE [None]
